FAERS Safety Report 8985007 (Version 3)
Quarter: 2013Q1

REPORT INFORMATION
  Report Type: Spontaneous
  Country: GR (occurrence: GR)
  Receive Date: 20121226
  Receipt Date: 20130103
  Transmission Date: 20140127
  Serious: Yes (Other)
  Sender: FDA-Public Use
  Company Number: ENTC2012--0508

PATIENT
  Age: 85 Year
  Sex: Female

DRUGS (4)
  1. STALEVO [Suspect]
     Indication: PARKINSON^S DISEASE
     Dosage: (50 MG,2 IN 1 D)
     Dates: start: 20121030
  2. MIRAPEXIN [Suspect]
  3. AMLOTENS [Concomitant]
     Indication: HYPERTENSION
  4. UNIMAZOLE [Concomitant]
     Indication: THYROID DISORDER

REACTIONS (6)
  - Chills [Recovered/Resolved]
  - Blood pressure increased [Recovered/Resolved]
  - Heart rate increased [Recovered/Resolved]
  - Tremor [Recovered/Resolved]
  - Feeling cold [Recovered/Resolved]
  - Dizziness [Recovered/Resolved]
